FAERS Safety Report 5514996-8 (Version None)
Quarter: 2007Q4

REPORT INFORMATION
  Report Type: 
  Country: None (occurrence: None)
  Receive Date: 20071113
  Receipt Date: 20061107
  Transmission Date: 20080405
  Serious: No
  Sender: FDA-Public Use
  Company Number: A0626576A

PATIENT
  Age: 81 Year
  Sex: Male

DRUGS (11)
  1. COREG [Suspect]
     Dosage: 3.125MG PER DAY
     Route: 048
     Dates: end: 20061001
  2. LISINOPRIL [Concomitant]
  3. FUROSEMIDE [Concomitant]
  4. CENTRUM SILVER [Concomitant]
  5. POTASSIUM CHLORIDE [Concomitant]
  6. WARFARIN SODIUM [Concomitant]
  7. SUCRALFATE [Concomitant]
  8. METOLAZONE [Concomitant]
  9. MEGESTROL ACETATE [Concomitant]
  10. ZANTAC [Concomitant]
  11. ALBUTEROL [Concomitant]

REACTIONS (1)
  - DYSPNOEA [None]
